FAERS Safety Report 5835595-4 (Version None)
Quarter: 2008Q3

REPORT INFORMATION
  Report Type: 
  Country: None (occurrence: None)
  Receive Date: 20080806
  Receipt Date: 20080724
  Transmission Date: 20090109
  Serious: Yes (Disabling)
  Sender: FDA-Public Use
  Company Number: GB-ASTRAZENECA-2008GB01397

PATIENT
  Age: 48 Year
  Sex: Female

DRUGS (2)
  1. QUETIAPINE FUMARATE [Suspect]
     Indication: SCHIZOPHRENIA
     Route: 048
     Dates: start: 20080301
  2. EFFEXOR XR [Concomitant]
     Dates: start: 20060101

REACTIONS (2)
  - ARTHRALGIA [None]
  - MYALGIA [None]
